FAERS Safety Report 17663405 (Version 1)
Quarter: 2020Q2

REPORT INFORMATION
  Report Type: Spontaneous
  Country: US (occurrence: US)
  Receive Date: 20200413
  Receipt Date: 20200413
  Transmission Date: 20200713
  Serious: Yes (Hospitalization, Other)
  Sender: FDA-Public Use
  Company Number: US-AUROBINDO-AUR-APL-2020-017459

PATIENT
  Age: 72 Year
  Sex: Male

DRUGS (5)
  1. LIDOCAINE INJECTION [Suspect]
     Active Substance: LIDOCAINE
     Indication: BRADYCARDIA
     Dosage: UNK
     Route: 065
  2. AMIODARONE [Concomitant]
     Active Substance: AMIODARONE
     Indication: PRODUCT USED FOR UNKNOWN INDICATION
     Dosage: UNK
     Route: 065
  3. METOPROLOL. [Concomitant]
     Active Substance: METOPROLOL
     Indication: PRODUCT USED FOR UNKNOWN INDICATION
     Dosage: UNK
     Route: 065
  4. ISOPROTERENOL. [Suspect]
     Active Substance: ISOPROTERENOL
     Indication: BRADYCARDIA
     Dosage: UNK
     Route: 065
  5. VEMURAFENIB. [Concomitant]
     Active Substance: VEMURAFENIB
     Indication: ERDHEIM-CHESTER DISEASE
     Dosage: UNK
     Route: 065

REACTIONS (1)
  - Atrial tachycardia [Unknown]
